FAERS Safety Report 7770257-8 (Version None)
Quarter: 2011Q3

REPORT INFORMATION
  Report Type: 
  Country: None (occurrence: None)
  Receive Date: 20110920
  Receipt Date: 20110913
  Transmission Date: 20111222
  Serious: Yes (Death, Other)
  Sender: FDA-Public Use
  Company Number: 201110668

PATIENT
  Age: 55 Year
  Sex: Female

DRUGS (3)
  1. LIORESAL [Suspect]
     Indication: MUSCLE SPASTICITY
     Dosage: 115 MCG AND 149.96, DAILY, INTRATHECAL
     Route: 037
  2. DILAUDID [Concomitant]
  3. BUPIVACAINE HCL [Concomitant]

REACTIONS (2)
  - PAIN [None]
  - DEVICE DISLOCATION [None]
